FAERS Safety Report 8613772 (Version 3)
Quarter: 2014Q1

REPORT INFORMATION
  Report Type: Spontaneous
  Country: US (occurrence: US)
  Receive Date: 20120614
  Receipt Date: 20140110
  Transmission Date: 20141002
  Serious: Yes (Hospitalization, Disabling, Other)
  Sender: FDA-Public Use
  Company Number: US-ASTRAZENECA-2012SE36380

PATIENT
  Age: 58 Year
  Sex: Female

DRUGS (27)
  1. NEXIUM [Suspect]
     Indication: GASTROOESOPHAGEAL REFLUX DISEASE
     Route: 048
     Dates: start: 2003, end: 2009
  2. NEXIUM [Suspect]
     Indication: GASTROOESOPHAGEAL REFLUX DISEASE
     Route: 048
     Dates: start: 20031211
  3. RANITIDINE [Concomitant]
     Indication: GASTROOESOPHAGEAL REFLUX DISEASE
  4. TUMS [Concomitant]
  5. ROLAIDS [Concomitant]
  6. TENORMIN [Concomitant]
     Indication: HYPERTENSION
     Route: 048
     Dates: start: 20061203
  7. HCTZ [Concomitant]
  8. PRAVASTATIN [Concomitant]
     Indication: BLOOD CHOLESTEROL INCREASED
  9. POTASSIUM [Concomitant]
  10. NIFEDIPINE [Concomitant]
     Indication: HYPERTENSION
  11. METOPROLOL [Concomitant]
     Indication: HYPERTENSION
  12. CHLORTALIDONE [Concomitant]
     Indication: HYPERTENSION
  13. LASIX [Concomitant]
     Indication: HYPERTENSION
  14. SERTRALINE [Concomitant]
     Indication: DEPRESSION
  15. BUPROPION [Concomitant]
     Indication: DEPRESSION
     Route: 048
     Dates: start: 20061213
  16. FOSAMAX [Concomitant]
     Indication: BONE LOSS
  17. QVAR [Concomitant]
     Indication: ASTHMA
  18. VENTOLIN [Concomitant]
     Indication: ASTHMA
  19. CENTRUM [Concomitant]
  20. FISH OIL [Concomitant]
  21. B COMPLEX [Concomitant]
  22. VITAMIN D3 [Concomitant]
  23. COENZYME Q10 [Concomitant]
  24. GLUCOSAMINE CHONDROITIN [Concomitant]
  25. ASPIRINE [Concomitant]
  26. K DUR [Concomitant]
  27. PREDNISONE [Concomitant]
     Route: 048
     Dates: start: 20070527

REACTIONS (8)
  - Ankle fracture [Unknown]
  - Rotator cuff syndrome [Unknown]
  - Fall [Unknown]
  - Chest pain [Unknown]
  - Fibula fracture [Unknown]
  - Osteoporosis [Unknown]
  - Bone density decreased [Unknown]
  - Arthritis [Unknown]
